FAERS Safety Report 9440717 (Version 1)
Quarter: 2013Q3

REPORT INFORMATION
  Report Type: Spontaneous
  Country: US (occurrence: US)
  Receive Date: 20130805
  Receipt Date: 20130805
  Transmission Date: 20140515
  Serious: No
  Sender: FDA-Public Use
  Company Number: US-JNJFOC-20130714653

PATIENT
  Age: 51 Year
  Sex: Male
  Weight: 70.31 kg

DRUGS (2)
  1. DURAGESIC [Suspect]
     Indication: NEOPLASM MALIGNANT
     Route: 062
     Dates: start: 201203, end: 201204
  2. DURAGESIC [Suspect]
     Indication: NEOPLASM MALIGNANT
     Route: 062
     Dates: start: 201204

REACTIONS (4)
  - Wrong technique in drug usage process [Not Recovered/Not Resolved]
  - Wrong technique in drug usage process [Not Recovered/Not Resolved]
  - Drug ineffective [Recovered/Resolved]
  - Product quality issue [Unknown]
